FAERS Safety Report 7513863-8 (Version None)
Quarter: 2011Q2

REPORT INFORMATION
  Report Type: 
  Country: None (occurrence: None)
  Receive Date: 20110531
  Receipt Date: 20110518
  Transmission Date: 20111010
  Serious: Yes (Other)
  Sender: FDA-Public Use
  Company Number: PHHY2011JP43137

PATIENT
  Age: 15 Year
  Sex: Female

DRUGS (3)
  1. CYCLOSPORINE [Suspect]
     Indication: GLOMERULONEPHRITIS MINIMAL LESION
  2. ADRENAL HORMONES PREPARATIONS [Concomitant]
     Indication: GLOMERULONEPHRITIS MINIMAL LESION
  3. MIZORIBINE [Concomitant]
     Indication: GLOMERULONEPHRITIS MINIMAL LESION

REACTIONS (1)
  - OSTEONECROSIS [None]
